FAERS Safety Report 17861895 (Version 2)
Quarter: 2020Q4

REPORT INFORMATION
  Report Type: Spontaneous
  Country: US (occurrence: US)
  Receive Date: 20200604
  Receipt Date: 20201223
  Transmission Date: 20210113
  Serious: No
  Sender: FDA-Public Use
  Company Number: US-009507513-2006USA001135

PATIENT
  Age: 67 Year
  Sex: Female

DRUGS (3)
  1. PRINIVIL [Suspect]
     Active Substance: LISINOPRIL
     Indication: ESSENTIAL HYPERTENSION
  2. ZESTRIL [Suspect]
     Active Substance: LISINOPRIL
     Indication: ESSENTIAL HYPERTENSION
     Dosage: 40 MILLIGRAM, DAILY
     Route: 048
  3. PRINIVIL [Suspect]
     Active Substance: LISINOPRIL
     Indication: HERPES ZOSTER
     Dosage: 40 MILLIGRAM, DAILY
     Route: 048
     Dates: start: 201611

REACTIONS (2)
  - Product use in unapproved indication [Unknown]
  - Drug ineffective [Unknown]

NARRATIVE: CASE EVENT DATE: 201611
